FAERS Safety Report 13818303 (Version 1)
Quarter: 2017Q3

REPORT INFORMATION
  Report Type: Spontaneous
  Country: US (occurrence: US)
  Receive Date: 20170731
  Receipt Date: 20170731
  Transmission Date: 20171127
  Serious: Yes (Hospitalization)
  Sender: FDA-Public Use
  Company Number: None

PATIENT
  Age: 76 Year
  Sex: Male

DRUGS (3)
  1. SPRYCEL [Suspect]
     Active Substance: DASATINIB
     Indication: CHRONIC MYELOID LEUKAEMIA
     Route: 048
     Dates: start: 20150108
  2. PROCRIT [Suspect]
     Active Substance: ERYTHROPOIETIN
     Indication: BONE MARROW FAILURE
     Dosage: DOSE - 60,000 U
     Route: 042
     Dates: start: 20170505
  3. PROCRIT [Suspect]
     Active Substance: ERYTHROPOIETIN
     Indication: BONE MARROW FAILURE
     Dosage: DOSE - 60,000 UNITS
     Route: 042
     Dates: start: 20170505

REACTIONS (1)
  - Renal disorder [None]

NARRATIVE: CASE EVENT DATE: 20170726
